FAERS Safety Report 16922648 (Version 1)
Quarter: 2019Q4

REPORT INFORMATION
  Report Type: Spontaneous
  Country: IT (occurrence: IT)
  Receive Date: 20191016
  Receipt Date: 20191016
  Transmission Date: 20200122
  Serious: No
  Sender: FDA-Public Use
  Company Number: IT-ALKEM LABORATORIES LIMITED-IT-ALKEM-2019-05885

PATIENT
  Age: 79 Year

DRUGS (1)
  1. DULOXETINE. [Suspect]
     Active Substance: DULOXETINE
     Indication: MAJOR DEPRESSION
     Dosage: 60 MILLIGRAM, QD
     Route: 065

REACTIONS (2)
  - Antidepressant drug level above therapeutic [Unknown]
  - Therapy partial responder [Unknown]
